FAERS Safety Report 8018959-2 (Version None)
Quarter: 2012Q1

REPORT INFORMATION
  Report Type: 
  Country: None (occurrence: None)
  Receive Date: 20120103
  Receipt Date: 20111231
  Transmission Date: 20120608
  Serious: Yes (Other)
  Sender: FDA-Public Use
  Company Number: US-PFIZER INC-2012000009

PATIENT
  Sex: Male

DRUGS (2)
  1. LYRICA [Suspect]
     Dosage: 150 MG, UNK
     Route: 048
     Dates: start: 20111201
  2. LYRICA [Suspect]
     Indication: FIBROMYALGIA
     Dosage: 100 MG, UNK
     Route: 048
     Dates: start: 20111201, end: 20111201

REACTIONS (8)
  - VERTIGO [None]
  - HYPERSOMNIA [None]
  - MUSCULAR WEAKNESS [None]
  - NECK PAIN [None]
  - DYSKINESIA [None]
  - FEELING ABNORMAL [None]
  - BONE PAIN [None]
  - MUSCULOSKELETAL PAIN [None]
